FAERS Safety Report 4888568-2 (Version None)
Quarter: 2005Q4

REPORT INFORMATION
  Report Type: 
  Country: None (occurrence: None)
  Receive Date: 20051215
  Receipt Date: 20041210
  Transmission Date: 20060501
  Serious: Yes (Other)
  Sender: FDA-Public Use
  Company Number: 2004233640US

PATIENT
  Age: 75 Year
  Sex: Male
  Weight: 83.4619 kg

DRUGS (6)
  1. BEXTRA [Suspect]
     Indication: ILL-DEFINED DISORDER
     Dosage: 20 MG (1 IN 1 D), ORAL
     Route: 048
     Dates: start: 20040801, end: 20040901
  2. AMLODIPINE/ATORVASTATIN (AMLODIPINE, ATORAVASTATIN) [Concomitant]
  3. CLOPIDOGREL BISULFATE [Concomitant]
  4. FOLIC ACID [Concomitant]
  5. INDOMETHACIN [Concomitant]
  6. AMLODIPINE BESYLATE [Concomitant]

REACTIONS (3)
  - DRUG INEFFECTIVE [None]
  - HAEMATOCRIT DECREASED [None]
  - RED BLOOD CELL COUNT DECREASED [None]
